FAERS Safety Report 16563564 (Version 1)
Quarter: 2019Q3

REPORT INFORMATION
  Report Type: Spontaneous
  Country: US (occurrence: US)
  Receive Date: 20190712
  Receipt Date: 20190712
  Transmission Date: 20191004
  Serious: No
  Sender: FDA-Public Use
  Company Number: US-ASTRAZENECA-2019SE99024

PATIENT

DRUGS (1)
  1. ESOMEPRAZOLE MAGNESIUM. [Suspect]
     Active Substance: ESOMEPRAZOLE MAGNESIUM
     Dosage: UNK
     Route: 048

REACTIONS (8)
  - Drug hypersensitivity [Unknown]
  - Erythema [Unknown]
  - Dyspnoea [Unknown]
  - Arthralgia [Unknown]
  - Swelling face [Unknown]
  - Abdominal distension [Unknown]
  - Myalgia [Unknown]
  - Oropharyngeal pain [Unknown]
